FAERS Safety Report 10211115 (Version 2)
Quarter: 2015Q1

REPORT INFORMATION
  Report Type: Spontaneous
  Country: US (occurrence: None)
  Receive Date: 20140528
  Receipt Date: 20150327
  Transmission Date: 20150720
  Serious: Yes (Hospitalization, Other)
  Sender: FDA-Public Use
  Company Number: 201405090

PATIENT
  Age: 72 Year
  Sex: Male
  Weight: 78.93 kg

DRUGS (4)
  1. METFORMIN [Concomitant]
     Active Substance: METFORMIN HYDROCHLORIDE
  2. TESTIM [Suspect]
     Active Substance: TESTOSTERONE
     Dates: start: 201008, end: 201207
  3. HYZAAR (HYDROCHLOROTHIAZIDE, LOSARTAN POTASSIUM) [Concomitant]
  4. ACTOS [Concomitant]
     Active Substance: PIOGLITAZONE HYDROCHLORIDE

REACTIONS (6)
  - Economic problem [None]
  - Physical disability [None]
  - Emotional disorder [None]
  - Injury [None]
  - Cerebrovascular accident [None]
  - Myocardial infarction [None]

NARRATIVE: CASE EVENT DATE: 20120305
